FAERS Safety Report 14353069 (Version 2)
Quarter: 2018Q1

REPORT INFORMATION
  Report Type: Report from Study
  Country: JP (occurrence: JP)
  Receive Date: 20180104
  Receipt Date: 20180116
  Transmission Date: 20180509
  Serious: Yes (Hospitalization)
  Sender: FDA-Public Use
  Company Number: JP-TAKEDA-2017TJP026480

PATIENT
  Age: 65 Year
  Sex: Female

DRUGS (5)
  1. REVLIMID [Concomitant]
     Active Substance: LENALIDOMIDE
     Dosage: UNK
     Route: 048
     Dates: start: 20170919
  2. LENADEX [Concomitant]
     Active Substance: DEXAMETHASONE ACETATE
     Dosage: UNK
     Route: 048
     Dates: start: 20170919
  3. REVLIMID [Concomitant]
     Active Substance: LENALIDOMIDE
     Indication: PLASMA CELL MYELOMA
     Dosage: UNK
     Route: 048
  4. IXAZOMIB [Suspect]
     Active Substance: IXAZOMIB
     Indication: PLASMA CELL MYELOMA
     Dosage: 4 MG, 1/WEEK
     Route: 048
     Dates: start: 20170919
  5. LENADEX [Concomitant]
     Active Substance: DEXAMETHASONE ACETATE
     Indication: PLASMA CELL MYELOMA
     Dosage: UNK
     Route: 048

REACTIONS (3)
  - Faeces soft [Unknown]
  - Platelet count decreased [Not Recovered/Not Resolved]
  - Femur fracture [Not Recovered/Not Resolved]

NARRATIVE: CASE EVENT DATE: 20171128
